FAERS Safety Report 4817868-7 (Version None)
Quarter: 2005Q4

REPORT INFORMATION
  Report Type: 
  Country: None (occurrence: None)
  Receive Date: 20051102
  Receipt Date: 20051026
  Transmission Date: 20060501
  Serious: Yes (Life-Threatening)
  Sender: FDA-Public Use
  Company Number: 2005AP05574

PATIENT
  Age: 27 Year
  Sex: Male
  Weight: 50 kg

DRUGS (7)
  1. DIPRIVAN [Suspect]
     Indication: SEDATION
     Route: 042
     Dates: start: 20051016, end: 20051021
  2. NEOPHYLLIN [Suspect]
     Route: 042
     Dates: start: 20051015, end: 20051023
  3. UNASYN [Suspect]
     Route: 042
     Dates: start: 20051016, end: 20051022
  4. SEVOFRANE [Suspect]
     Route: 055
     Dates: start: 20051019, end: 20051021
  5. DORMICUM [Concomitant]
     Indication: SEDATION
     Dates: start: 20051015
  6. DORMICUM [Concomitant]
     Dates: start: 20051015
  7. PROTERNOL [Concomitant]
     Route: 055
     Dates: start: 20051016

REACTIONS (3)
  - ALANINE AMINOTRANSFERASE INCREASED [None]
  - ASPARTATE AMINOTRANSFERASE INCREASED [None]
  - LIVER DISORDER [None]
